FAERS Safety Report 24249514 (Version 2)
Quarter: 2025Q1

REPORT INFORMATION
  Report Type: Spontaneous
  Country: US (occurrence: US)
  Receive Date: 20240826
  Receipt Date: 20250115
  Transmission Date: 20250409
  Serious: No
  Sender: SANOFI AVENTIS
  Company Number: US-SA-SAC20240819000130

PATIENT
  Sex: Female
  Weight: 14.1 kg

DRUGS (1)
  1. DUPIXENT [Suspect]
     Active Substance: DUPILUMAB
     Indication: Illness
     Dosage: 200 MG, Q4W
     Route: 058

REACTIONS (5)
  - Wound [Unknown]
  - Scratch [Unknown]
  - Discomfort [Unknown]
  - Hypersensitivity [Unknown]
  - Injection site pain [Unknown]
